FAERS Safety Report 9768274 (Version 1)
Quarter: 2013Q4

REPORT INFORMATION
  Report Type: Spontaneous
  Country: DK (occurrence: FR)
  Receive Date: 20131217
  Receipt Date: 20131217
  Transmission Date: 20140711
  Serious: Yes (Hospitalization)
  Sender: FDA-Public Use
  Company Number: FR-FRI-1000052284

PATIENT
  Age: 64 Year
  Sex: Male

DRUGS (2)
  1. ESCITALOPRAM [Suspect]
     Route: 048
  2. ASPEGIC [Suspect]
     Dosage: 1 DF
     Route: 048

REACTIONS (2)
  - Subdural haematoma [Not Recovered/Not Resolved]
  - Condition aggravated [Not Recovered/Not Resolved]
